FAERS Safety Report 10196763 (Version 1)
Quarter: 2014Q2

REPORT INFORMATION
  Report Type: Spontaneous
  Country: US (occurrence: US)
  Receive Date: 20140527
  Receipt Date: 20140527
  Transmission Date: 20141212
  Serious: Yes (Other)
  Sender: FDA-Public Use
  Company Number: US-WATSON-2014-10390

PATIENT
  Sex: 0

DRUGS (2)
  1. BUPROPION HYDROCHLORIDE (WATSON LABORATORIES) [Suspect]
     Indication: DRUG ABUSE
     Dosage: UNK
     Route: 065
  2. BUPROPION HYDROCHLORIDE (WATSON LABORATORIES) [Suspect]
     Indication: INTENTIONAL PRODUCT MISUSE

REACTIONS (3)
  - Convulsion [Recovered/Resolved]
  - Intentional product misuse [Unknown]
  - Drug abuse [Unknown]
